FAERS Safety Report 12067152 (Version 2)
Quarter: 2016Q2

REPORT INFORMATION
  Report Type: Spontaneous
  Country: US (occurrence: US)
  Receive Date: 20160210
  Receipt Date: 20160519
  Transmission Date: 20160815
  Serious: Yes (Hospitalization, Other)
  Sender: FDA-Public Use
  Company Number: US-JNJFOC-20151207578

PATIENT
  Age: 7 Decade
  Sex: Male

DRUGS (1)
  1. DARZALEX [Suspect]
     Active Substance: DARATUMUMAB
     Indication: PLASMA CELL MYELOMA
     Route: 042
     Dates: start: 20151204

REACTIONS (11)
  - Platelet count decreased [Unknown]
  - Oxygen saturation decreased [Unknown]
  - Neutropenia [Unknown]
  - Foaming at mouth [Unknown]
  - Infusion related reaction [Unknown]
  - White blood cell count decreased [Unknown]
  - Chills [Unknown]
  - Dyspnoea [Unknown]
  - Bronchospasm [Unknown]
  - Hypertension [Unknown]
  - Blood pressure increased [Unknown]

NARRATIVE: CASE EVENT DATE: 20151204
